FAERS Safety Report 19240269 (Version 1)
Quarter: 2021Q2

REPORT INFORMATION
  Report Type: Spontaneous
  Country: DE (occurrence: DE)
  Receive Date: 20210511
  Receipt Date: 20210511
  Transmission Date: 20210717
  Serious: Yes (Other)
  Sender: FDA-Public Use
  Company Number: DE-HRAPH01-2021000349

PATIENT
  Sex: Female

DRUGS (1)
  1. ELLAONE [Suspect]
     Active Substance: ULIPRISTAL ACETATE
     Route: 048
     Dates: start: 202103

REACTIONS (3)
  - Vaginal haemorrhage [Recovered/Resolved]
  - Abortion spontaneous [Recovered/Resolved]
  - Unintended pregnancy [Recovered/Resolved]

NARRATIVE: CASE EVENT DATE: 2021
